FAERS Safety Report 20430832 (Version 2)
Quarter: 2024Q3

REPORT INFORMATION
  Report Type: Report from Study
  Country: FR (occurrence: FR)
  Receive Date: 20220204
  Receipt Date: 20240917
  Transmission Date: 20241017
  Serious: Yes (Other)
  Sender: SERVIER
  Company Number: FR-SERVIER-S21006533

PATIENT

DRUGS (7)
  1. PEGASPARGASE [Suspect]
     Active Substance: PEGASPARGASE
     Indication: Acute lymphocytic leukaemia
     Dosage: 1875 IU, D12
     Route: 042
     Dates: start: 20170515
  2. DEXAMETHASONE [Suspect]
     Active Substance: DEXAMETHASONE
     Indication: Acute lymphocytic leukaemia
     Dosage: 4.5 MG, D1-D19
     Route: 048
     Dates: start: 20170511
  3. VINCRISTINE [Suspect]
     Active Substance: VINCRISTINE
     Indication: Acute lymphocytic leukaemia
     Dosage: 1.1 MG, D8-D15
     Route: 042
     Dates: start: 20170511
  4. METHOTREXATE [Suspect]
     Active Substance: METHOTREXATE
     Indication: Acute lymphocytic leukaemia
     Dosage: 12 MG, D1, D13, D24
     Route: 037
     Dates: start: 20170503, end: 20170529
  5. COTRIMOXAZOLE [Concomitant]
     Active Substance: SULFAMETHOXAZOLE\TRIMETHOPRIM
     Indication: Infection prophylaxis
     Dosage: 480 MG
     Route: 048
     Dates: start: 20170504, end: 20181127
  6. INSULIN NOS [Concomitant]
     Active Substance: INSULIN NOS
     Indication: Steroid diabetes
     Dosage: 10 IU
     Route: 058
     Dates: start: 20170518, end: 20170521
  7. INSULIN NOS [Concomitant]
     Active Substance: INSULIN NOS
     Dosage: 3 IU
     Route: 058
     Dates: start: 20170522, end: 20170523

REACTIONS (1)
  - Hyperlipidaemia [Recovered/Resolved]

NARRATIVE: CASE EVENT DATE: 20170522
